FAERS Safety Report 24246211 (Version 1)
Quarter: 2024Q3

REPORT INFORMATION
  Report Type: Spontaneous
  Country: CN (occurrence: CN)
  Receive Date: 20240824
  Receipt Date: 20240824
  Transmission Date: 20241016
  Serious: Yes (Hospitalization, Other)
  Sender: TAKEDA
  Company Number: CN-HUTCHMED LIMITED-HMP2024CN01912

PATIENT
  Age: 56 Year
  Sex: Male
  Weight: 64 kg

DRUGS (4)
  1. FRUQUINTINIB [Suspect]
     Active Substance: FRUQUINTINIB
     Indication: Colon cancer
     Dosage: 5 MILLIGRAM, QD
     Route: 048
     Dates: start: 20240726, end: 20240811
  2. FLUOROURACIL [Concomitant]
     Active Substance: FLUOROURACIL
     Indication: Colon cancer
     Dosage: 0.66 GRAM, QD
     Route: 042
     Dates: start: 20240726, end: 20240726
  3. FLUOROURACIL [Concomitant]
     Active Substance: FLUOROURACIL
     Dosage: 3.96 GRAM
     Route: 042
     Dates: start: 20240726, end: 20240727
  4. IRINOTECAN HYDROCHLORIDE [Concomitant]
     Active Substance: IRINOTECAN HYDROCHLORIDE
     Indication: Colon cancer
     Dosage: 260 MILLIGRAM, QD
     Route: 041
     Dates: start: 20240726, end: 20240726

REACTIONS (1)
  - Myelosuppression [Recovering/Resolving]

NARRATIVE: CASE EVENT DATE: 20240811
